FAERS Safety Report 23957956 (Version 1)
Quarter: 2024Q2

REPORT INFORMATION
  Report Type: Report from Study
  Country: US (occurrence: US)
  Receive Date: 20240610
  Receipt Date: 20240610
  Transmission Date: 20240716
  Serious: Yes (Hospitalization, Other)
  Sender: FDA-Public Use
  Company Number: US-JNJFOC-20240607390

PATIENT
  Age: 72 Year
  Sex: Female

DRUGS (2)
  1. SELEXIPAG [Suspect]
     Active Substance: SELEXIPAG
     Indication: Pulmonary arterial hypertension
     Route: 048
     Dates: start: 202401
  2. OPSUMIT [Concomitant]
     Active Substance: MACITENTAN

REACTIONS (6)
  - Dyspnoea [Unknown]
  - Oxygen saturation decreased [Unknown]
  - Pneumonia [Unknown]
  - Product dose omission issue [Unknown]
  - Fluid retention [Unknown]
  - Weight decreased [Unknown]

NARRATIVE: CASE EVENT DATE: 20240526
